FAERS Safety Report 5343373-8 (Version None)
Quarter: 2007Q2

REPORT INFORMATION
  Report Type: 
  Country: None (occurrence: None)
  Receive Date: 20070501
  Receipt Date: 20070215
  Transmission Date: 20071010
  Serious: No
  Sender: FDA-Public Use
  Company Number: 200620230US

PATIENT
  Age: 48 Year
  Sex: Female
  Weight: 86 kg

DRUGS (12)
  1. KETEK [Suspect]
     Indication: SINUSITIS
     Dosage: 800 MG QD
     Dates: start: 20050610, end: 20060101
  2. ERGOCALCIFEROL [Concomitant]
  3. ASCORBIC ACID [Concomitant]
  4. FOLIC ACID [Concomitant]
  5. THIAMINE HCL [Concomitant]
  6. RETINOL [Concomitant]
  7. RIBOFLAVIN [Concomitant]
  8. NICOTINAMIDE [Concomitant]
  9. PANTHENOL (MULTIVITAMINS) [Concomitant]
  10. FOLIC ACID [Concomitant]
  11. ........................ [Concomitant]
  12. CYANOCOBALAMIN (VITAMIN B-12) [Concomitant]

REACTIONS (3)
  - CHROMATURIA [None]
  - JAUNDICE [None]
  - OCULAR ICTERUS [None]
